FAERS Safety Report 18332880 (Version 2)
Quarter: 2020Q4

REPORT INFORMATION
  Report Type: Other
  Country: US (occurrence: US)
  Receive Date: 20200930
  Receipt Date: 20201118
  Transmission Date: 20210113
  Serious: Yes (Hospitalization)
  Sender: FDA-Public Use
  Company Number: US-ROCHE-2649813

PATIENT
  Age: 49 Year
  Sex: Female
  Weight: 130.75 kg

DRUGS (2)
  1. OCREVUS [Suspect]
     Active Substance: OCRELIZUMAB
     Indication: RELAPSING-REMITTING MULTIPLE SCLEROSIS
     Dosage: INFUSE 300 MG ON DAY ONE AND INFUSE 300MG ON DAY 15; AND LATER EVERY 6 MONTHS
     Route: 042
     Dates: start: 20181107
  2. RITUXAN [Suspect]
     Active Substance: RITUXIMAB
     Indication: INTENTIONAL PRODUCT USE ISSUE
     Route: 065

REACTIONS (4)
  - Gastrooesophageal reflux disease [Unknown]
  - COVID-19 [Recovered/Resolved]
  - Hernia [Unknown]
  - Drug ineffective [Unknown]

NARRATIVE: CASE EVENT DATE: 20200712
